FAERS Safety Report 23155917 (Version 2)
Quarter: 2023Q4

REPORT INFORMATION
  Report Type: Spontaneous
  Country: US (occurrence: US)
  Receive Date: 20231107
  Receipt Date: 20231128
  Transmission Date: 20240110
  Serious: Yes (Hospitalization)
  Sender: FDA-Public Use
  Company Number: US-AMERICAN REGENT INC-2023002513

PATIENT
  Age: 85 Year
  Sex: Male
  Weight: 60.5 kg

DRUGS (8)
  1. VENOFER [Suspect]
     Active Substance: IRON SUCROSE
     Indication: Anaemia
     Dosage: 100 MILLIGRAM, SINGLE
     Route: 042
     Dates: start: 20231020, end: 20231020
  2. MIRCERA [Suspect]
     Active Substance: METHOXY POLYETHYLENE GLYCOL-EPOETIN BETA
     Indication: Anaemia
     Dosage: FIRST DOSE (30 MCG) (SCHEDULED TO BE ADMINISTERED FOR 26 MINUTES)
     Route: 042
     Dates: start: 20231020, end: 20231020
  3. CALCITRIOL [Concomitant]
     Active Substance: CALCITRIOL
     Indication: Blood calcium decreased
     Dosage: 0.25 MICROGRAM, 3 IN 1 WK
     Route: 048
  4. EPOGEN [Concomitant]
     Active Substance: ERYTHROPOIETIN
     Indication: Anaemia
     Dosage: 2400 IU INTERNATIONAL UNIT(S), 3 IN 1 WK
     Route: 042
  5. HEPARIN [Concomitant]
     Active Substance: HEPARIN SODIUM
     Indication: Anticoagulant therapy
     Dosage: 2600 IU INTERNATIONAL UNIT(S), 3 IN 1 WK
     Route: 042
  6. BILBERRY [VACCINIUM MYRTILLUS] [Concomitant]
     Indication: Supplementation therapy
     Dosage: PO, UNK
     Route: 048
  7. COQ10 OMEGA [Concomitant]
     Indication: Supplementation therapy
     Dosage: PO, UNK
     Route: 048
  8. D-MANNOSE [Concomitant]
     Indication: Supplementation therapy
     Dosage: PO, UNK
     Route: 048

REACTIONS (1)
  - Drug hypersensitivity [Recovered/Resolved]

NARRATIVE: CASE EVENT DATE: 20231020
